FAERS Safety Report 4486345-8 (Version None)
Quarter: 2004Q4

REPORT INFORMATION
  Report Type: 
  Country: None (occurrence: None)
  Receive Date: 20041022
  Receipt Date: 20041007
  Transmission Date: 20050328
  Serious: Yes (Death)
  Sender: FDA-Public Use
  Company Number: 2004S1003019

PATIENT
  Age: 79 Year
  Sex: Male

DRUGS (1)
  1. CLOZAPINE TABLETS 25 MG MYLAN [Suspect]
     Dosage: 25 MG/DAY ORAL
     Route: 048

REACTIONS (1)
  - DEATH [None]
